FAERS Safety Report 14612440 (Version 1)
Quarter: 2018Q1

REPORT INFORMATION
  Report Type: Report from Study
  Country: IT (occurrence: IT)
  Receive Date: 20180308
  Receipt Date: 20180308
  Transmission Date: 20180509
  Serious: Yes (Hospitalization)
  Sender: FDA-Public Use
  Company Number: IT-ASTELLAS-2018US011618

PATIENT
  Age: 5 Month
  Sex: Female
  Weight: 4 kg

DRUGS (2)
  1. TACROLIMUS. [Suspect]
     Active Substance: TACROLIMUS
     Route: 048
  2. TACROLIMUS. [Suspect]
     Active Substance: TACROLIMUS
     Indication: TRANSPLANT
     Dosage: 5.2 MG, TOTAL DOSE (DURATION 2 DAYS)
     Route: 048
     Dates: start: 20171221, end: 20171223

REACTIONS (1)
  - Incorrect dose administered [Unknown]
